FAERS Safety Report 5394252-1 (Version None)
Quarter: 2007Q3

REPORT INFORMATION
  Report Type: 
  Country: None (occurrence: None)
  Receive Date: 20070723
  Receipt Date: 20070711
  Transmission Date: 20080115
  Serious: Yes (Other)
  Sender: FDA-Public Use
  Company Number: A0652128A

PATIENT
  Age: 69 Year
  Sex: Female

DRUGS (7)
  1. AVANDIA [Suspect]
     Dosage: 4MG TWICE PER DAY
     Route: 048
  2. TOPROL-XL [Concomitant]
  3. POTASSIUM CHLORIDE [Concomitant]
  4. HYZAAR [Concomitant]
  5. FUROSEMIDE [Concomitant]
  6. PIROXICAM [Concomitant]
  7. PRANDIN [Concomitant]

REACTIONS (2)
  - CARDIAC FAILURE CONGESTIVE [None]
  - OEDEMA PERIPHERAL [None]
